FAERS Safety Report 10412779 (Version 1)
Quarter: 2014Q3

REPORT INFORMATION
  Report Type: Spontaneous
  Country: US (occurrence: US)
  Receive Date: 20140827
  Receipt Date: 20140827
  Transmission Date: 20150326
  Serious: No
  Sender: FDA-Public Use
  Company Number: US-009507513-1408USA010653

PATIENT
  Age: 30 Year
  Sex: Female
  Weight: 95.69 kg

DRUGS (1)
  1. NEXPLANON [Suspect]
     Active Substance: ETONOGESTREL
     Indication: CONTRACEPTION
     Dosage: 1 UNIT/THREE YEARS, LEFT ARM
     Route: 059
     Dates: start: 20140408

REACTIONS (4)
  - Device dislocation [Unknown]
  - Breast pain [Unknown]
  - Medical device complication [Unknown]
  - Hypertension [Unknown]

NARRATIVE: CASE EVENT DATE: 2014
